FAERS Safety Report 10093905 (Version 1)
Quarter: 2014Q2

REPORT INFORMATION
  Report Type: Spontaneous
  Country: US (occurrence: US)
  Receive Date: 20140421
  Receipt Date: 20140421
  Transmission Date: 20141212
  Serious: No
  Sender: FDA-Public Use
  Company Number: US-SA-2014SA028691

PATIENT
  Age: 84 Year
  Sex: Female

DRUGS (5)
  1. ALLEGRA [Suspect]
     Indication: RHINORRHOEA
     Route: 048
     Dates: start: 201402, end: 20140302
  2. ALLEGRA [Suspect]
     Indication: LACRIMATION INCREASED
     Route: 048
     Dates: start: 201402, end: 20140302
  3. ALLEGRA [Suspect]
     Indication: EYE PRURITUS
     Route: 048
     Dates: start: 201402, end: 20140302
  4. ALLEGRA [Suspect]
     Indication: DRY EYE
     Route: 048
     Dates: start: 201402, end: 20140302
  5. ZYRTEC [Concomitant]
     Route: 065

REACTIONS (3)
  - Memory impairment [Unknown]
  - Rash [Unknown]
  - Discomfort [Unknown]
